FAERS Safety Report 24716691 (Version 1)
Quarter: 2024Q4

REPORT INFORMATION
  Report Type: Spontaneous
  Country: US (occurrence: None)
  Receive Date: 20241210
  Receipt Date: 20241210
  Transmission Date: 20250115
  Serious: Yes (Hospitalization)
  Sender: Public
  Company Number: None

PATIENT
  Age: 71 Year
  Sex: Male
  Weight: 97.6 kg

DRUGS (4)
  1. FLUOROURACIL [Suspect]
     Active Substance: FLUOROURACIL
     Dates: end: 20241129
  2. LEUCOVORIN CALCIUM [Suspect]
     Active Substance: LEUCOVORIN CALCIUM
     Dates: start: 20241127
  3. NIVOLUMAB [Suspect]
     Active Substance: NIVOLUMAB
  4. OXALIPLATIN [Suspect]
     Active Substance: OXALIPLATIN

REACTIONS (9)
  - Fatigue [None]
  - Asthenia [None]
  - Oxygen saturation decreased [None]
  - White blood cell count increased [None]
  - Blood lactic acid increased [None]
  - Pneumonia [None]
  - Sepsis [None]
  - Large intestine perforation [None]
  - Respiratory failure [None]

NARRATIVE: CASE EVENT DATE: 20241204
